FAERS Safety Report 8432157 (Version 5)
Quarter: 2012Q4

REPORT INFORMATION
  Report Type: Spontaneous
  Country: US (occurrence: None)
  Receive Date: 20120213
  Receipt Date: 20120918
  Transmission Date: 20130627
  Serious: Yes (Hospitalization)
  Sender: FDA-Public Use
  Company Number: 2012031019

PATIENT
  Age: 62 Year
  Sex: Male
  Weight: 80.74 kg

DRUGS (29)
  1. HIZENTRA [Suspect]
     Indication: HYPOGLOBULINAEMIA
     Dosage: (8 G 1X/WEEK, 4 GM (20 ML) SUBCUTANEOUS)
     Route: 058
     Dates: start: 20120127, end: 20120127
  2. HIZENTRA [Suspect]
     Indication: IMMUNODEFICIENCY COMMON VARIABLE
     Dosage: (8 G 1X/WEEK, 4 GM (20 ML) SUBCUTANEOUS)
     Route: 058
     Dates: start: 20120127, end: 20120127
  3. HIZENTRA [Suspect]
     Indication: HYPOGLOBULINAEMIA
     Route: 058
     Dates: start: 20120615
  4. HIZENTRA [Suspect]
     Indication: IMMUNODEFICIENCY COMMON VARIABLE
     Route: 058
     Dates: start: 20120615
  5. HIZENTRA [Suspect]
     Indication: HYPOGLOBULINAEMIA
     Route: 058
     Dates: start: 20120818, end: 20120818
  6. HIZENTRA [Suspect]
     Indication: IMMUNODEFICIENCY COMMON VARIABLE
     Route: 058
     Dates: start: 20120818, end: 20120818
  7. SINGULAIR (MONTELUKAST) [Concomitant]
  8. PANTOPRAZOLE (PANTOPRAZOLE) [Concomitant]
  9. PAXIL (PAROXETINE HYDROCHLORIDE) [Concomitant]
  10. LASIX (FUROSEMIDE) [Concomitant]
  11. LYRICA (PREGABALIN) [Concomitant]
  12. POTASSIUM CHLORIDE (POTASSIUM CHLORIDE) [Concomitant]
  13. LISINOPRIL (LISINOPRIL) [Concomitant]
  14. FLONASE (FLUTICASONE PROPIONATE) [Concomitant]
  15. SYMBICORT (BUDESONIDE W/FORMOTEROL FUMARATE) [Concomitant]
  16. ASPIRIN (ACETYLSALICYLIC ACID) [Concomitant]
  17. CRESTOR (ROSUVASTATIN) [Concomitant]
  18. MORPHINE SULFATE (MORPHINE SULFATE) [Concomitant]
  19. VITAMIN D3 (COLECALCIFEROL) [Concomitant]
  20. MULTIVITAMINS (MULTIVITAMINS) [Concomitant]
  21. MINOXIDIL (MINOXIDIL) [Concomitant]
  22. MIRALAX (MACROGOL) [Concomitant]
  23. FISH OIL (FISH OIL) [Concomitant]
  24. PLAVIX (CLOPIDOGREL) [Concomitant]
  25. DUONEB (COMBIVENT /01261001/) [Concomitant]
  26. DIPHENHYDRAMINE (DIPHENHYDRAMINE) [Concomitant]
  27. LIDOCAINE/PRILOCAINE (EMLA /00675501/) [Concomitant]
  28. LMX (LIDOCAINE) [Concomitant]
  29. EPI-PEN (EPINEPHRINE HYDROCHLORIDE) [Concomitant]

REACTIONS (18)
  - Pain [None]
  - Chills [None]
  - Fatigue [None]
  - Chest pain [None]
  - Infusion site swelling [None]
  - Asthenia [None]
  - Chest discomfort [None]
  - Dyspnoea [None]
  - Infusion site thrombosis [None]
  - Bronchiectasis [None]
  - Pneumonia [None]
  - Headache [None]
  - Rash [None]
  - Erythema [None]
  - Injection site bruising [None]
  - Oedema peripheral [None]
  - Joint swelling [None]
  - Oedema peripheral [None]
